FAERS Safety Report 20811024 (Version 8)
Quarter: 2025Q2

REPORT INFORMATION
  Report Type: Spontaneous
  Country: US (occurrence: US)
  Receive Date: 20220510
  Receipt Date: 20250610
  Transmission Date: 20250716
  Serious: Yes (Hospitalization, Other)
  Sender: PFIZER
  Company Number: US-PFIZER INC-202101781167

PATIENT
  Age: 67 Year
  Sex: Female
  Weight: 91.156 kg

DRUGS (2)
  1. XELJANZ XR [Suspect]
     Active Substance: TOFACITINIB CITRATE
     Indication: Rheumatoid arthritis
     Dosage: 11 MG, DAILY
     Route: 048
     Dates: end: 20250220
  2. XELJANZ XR [Suspect]
     Active Substance: TOFACITINIB CITRATE
     Indication: Osteoarthritis

REACTIONS (8)
  - Knee arthroplasty [Recovering/Resolving]
  - Stress [Unknown]
  - Insomnia [Unknown]
  - Malaise [Unknown]
  - Pain [Unknown]
  - Confusional state [Unknown]
  - Psychiatric symptom [Unknown]
  - Condition aggravated [Recovered/Resolved]

NARRATIVE: CASE EVENT DATE: 20250201
